FAERS Safety Report 7409072-3 (Version None)
Quarter: 2011Q2

REPORT INFORMATION
  Report Type: 
  Country: None (occurrence: None)
  Receive Date: 20110412
  Receipt Date: 20110329
  Transmission Date: 20111010
  Serious: Yes (Hospitalization)
  Sender: FDA-Public Use
  Company Number: NL-SANOFI-AVENTIS-2011SA020103

PATIENT
  Age: 82 Year
  Sex: Female

DRUGS (9)
  1. ASCAL [Suspect]
     Route: 048
     Dates: start: 20050720
  2. FUROSEMIDE [Concomitant]
     Route: 048
     Dates: start: 20050720
  3. CARVEDILOL [Concomitant]
     Route: 048
     Dates: start: 20050720
  4. HALOPERIDOL [Concomitant]
     Route: 048
     Dates: start: 20050720
  5. ACETYLCYSTEINE [Concomitant]
     Dosage: POWDER IN SACHET.
     Route: 065
     Dates: start: 20060215
  6. PERINDOPRIL ERBUMINE [Concomitant]
     Route: 048
     Dates: start: 20050720
  7. ATROVENT [Concomitant]
     Route: 055
     Dates: start: 20050720
  8. PROTAGENS [Concomitant]
     Dosage: TUBE. 20 MG/ML.
     Route: 065
     Dates: start: 20061208
  9. PLAVIX [Suspect]
     Route: 048
     Dates: start: 20050720

REACTIONS (3)
  - VOMITING [None]
  - ABDOMINAL PAIN [None]
  - HAEMATOCHEZIA [None]
